FAERS Safety Report 7720072-6 (Version None)
Quarter: 2011Q3

REPORT INFORMATION
  Report Type: 
  Country: None (occurrence: None)
  Receive Date: 20110831
  Receipt Date: 20110825
  Transmission Date: 20111222
  Serious: Yes (Death, Hospitalization)
  Sender: FDA-Public Use
  Company Number: BR-SHIRE-SPV1-2011-01146

PATIENT
  Sex: Male

DRUGS (1)
  1. ELAPRASE [Suspect]
     Indication: MUCOPOLYSACCHARIDOSIS II
     Dosage: UNK UNK, 1X/WEEK
     Route: 041
     Dates: end: 20110420

REACTIONS (11)
  - RHINOVIRUS INFECTION [None]
  - TRACHEOBRONCHITIS [None]
  - RESPIRATORY TRACT INFECTION VIRAL [None]
  - CYTOMEGALOVIRUS INFECTION [None]
  - BACTERAEMIA [None]
  - PULMONARY HYPERTENSIVE CRISIS [None]
  - ADENOVIRUS INFECTION [None]
  - CARDIO-RESPIRATORY ARREST [None]
  - BONE MARROW TRANSPLANT [None]
  - BRONCHOPNEUMONIA [None]
  - INFUSION RELATED REACTION [None]
